FAERS Safety Report 4588242-6 (Version None)
Quarter: 2005Q1

REPORT INFORMATION
  Report Type: 
  Country: None (occurrence: None)
  Receive Date: 20050221
  Receipt Date: 20050210
  Transmission Date: 20050727
  Serious: Yes (Hospitalization)
  Sender: FDA-Public Use
  Company Number: AU-ROCHE-395095

PATIENT
  Age: 55 Year
  Sex: Female

DRUGS (7)
  1. CAPECITABINE [Suspect]
     Dosage: GIVEN ON DAYS 1-14 OF A 21 DAY CYCLE
     Route: 048
     Dates: start: 20040130
  2. VINORELBINE [Suspect]
     Dosage: GIVEN ON DAYS 1 AND 8 OF A 21 DAY CYCLE
     Route: 048
     Dates: start: 20040630
  3. ZOLOFT [Concomitant]
     Dates: start: 20030615
  4. RABEPRAZOLE SODIUM [Concomitant]
     Dates: start: 20030615
  5. VERAPAMIL [Concomitant]
     Dates: start: 20040615
  6. TEMAZEPAM [Concomitant]
  7. SEROQUEL [Concomitant]
     Dates: start: 20031221

REACTIONS (5)
  - ABDOMINAL PAIN [None]
  - ANXIETY [None]
  - CONSTIPATION [None]
  - NAUSEA [None]
  - VOMITING [None]
